FAERS Safety Report 10677361 (Version 1)
Quarter: 2014Q4

REPORT INFORMATION
  Report Type: Spontaneous
  Country: GB (occurrence: GB)
  Receive Date: 20141226
  Receipt Date: 20141226
  Transmission Date: 20150529
  Serious: Yes (Other)
  Sender: FDA-Public Use
  Company Number: PHHY2014GB166771

PATIENT
  Age: 69 Year
  Sex: Female
  Weight: 85 kg

DRUGS (7)
  1. CYCLOPHOSPHAMIDE. [Suspect]
     Active Substance: CYCLOPHOSPHAMIDE
     Indication: NEOPLASM MALIGNANT
     Dosage: UNK
  2. FLUOROURACIL. [Suspect]
     Active Substance: FLUOROURACIL
     Indication: NEOPLASM MALIGNANT
     Dosage: UNK
  3. DOCETAXEL. [Suspect]
     Active Substance: DOCETAXEL
     Indication: NEOPLASM MALIGNANT
     Dosage: UNK
  4. AMLODIPINE [Concomitant]
     Active Substance: AMLODIPINE BESYLATE
     Dosage: UNK
  5. EPIRUBICIN [Suspect]
     Active Substance: EPIRUBICIN
     Indication: NEOPLASM MALIGNANT
     Dosage: UNK
  6. CIPRALEX//ESCITALOPRAM OXALATE [Concomitant]
     Dosage: UNK
  7. HIPREX [Concomitant]
     Active Substance: METHENAMINE HIPPURATE
     Dosage: UNK

REACTIONS (2)
  - Sexual dysfunction [Not Recovered/Not Resolved]
  - Urinary incontinence [Not Recovered/Not Resolved]
